FAERS Safety Report 5849749-4 (Version None)
Quarter: 2008Q3

REPORT INFORMATION
  Report Type: 
  Country: None (occurrence: None)
  Receive Date: 20080818
  Receipt Date: 20080818
  Transmission Date: 20090109
  Serious: Yes (Hospitalization)
  Sender: FDA-Public Use
  Company Number: None

PATIENT
  Age: 56 Year
  Sex: Female
  Weight: 67.9 kg

DRUGS (2)
  1. CLINDAMYCIN PHOSPHATE AND TRETINOIN [Suspect]
     Indication: INFECTION
     Dosage: 150 MG QID PO
     Route: 048
     Dates: start: 20080617, end: 20080618
  2. LISINOPRIL [Suspect]
     Dosage: 40 MG EVERY DAY PO
     Route: 048
     Dates: start: 20071115, end: 20080618

REACTIONS (4)
  - ANGIOEDEMA [None]
  - CHEST DISCOMFORT [None]
  - PRURITUS [None]
  - URTICARIA [None]
